FAERS Safety Report 21022667 (Version 1)
Quarter: 2022Q2

REPORT INFORMATION
  Report Type: Spontaneous
  Country: US (occurrence: US)
  Receive Date: 20220629
  Receipt Date: 20220629
  Transmission Date: 20220721
  Serious: Yes (Disabling, Other)
  Sender: FDA-Public Use
  Company Number: US-009507513-2111USA000798

PATIENT
  Sex: Male

DRUGS (5)
  1. ZOSTAVAX [Suspect]
     Active Substance: VARICELLA-ZOSTER VIRUS STRAIN OKA/MERCK LIVE ANTIGEN
     Indication: Routine health maintenance
     Dosage: .65 MILLILITER
     Route: 058
     Dates: start: 20151021
  2. ZOSTAVAX [Suspect]
     Active Substance: VARICELLA-ZOSTER VIRUS STRAIN OKA/MERCK LIVE ANTIGEN
     Indication: Prophylaxis
  3. STERILE DILUENT (WATER) [Suspect]
     Active Substance: WATER
     Dosage: UNK
     Dates: start: 20151021
  4. HUMIRA [Concomitant]
     Active Substance: ADALIMUMAB
     Indication: Psoriatic arthropathy
     Dosage: 40 MILLIGRAM, QOW
     Dates: start: 2007
  5. LOSARTAN [Concomitant]
     Active Substance: LOSARTAN
     Indication: Hypertension
     Dosage: 50 MILLIGRAM, 1 PER DAY
     Dates: start: 2008

REACTIONS (26)
  - Blindness [Not Recovered/Not Resolved]
  - Deafness [Not Recovered/Not Resolved]
  - Neuropathy peripheral [Unknown]
  - Ophthalmic herpes zoster [Unknown]
  - Retinal detachment [Unknown]
  - Herpes zoster [Unknown]
  - Type 2 diabetes mellitus [Not Recovered/Not Resolved]
  - Blood cholesterol increased [Not Recovered/Not Resolved]
  - Head injury [Unknown]
  - Vitreous floaters [Unknown]
  - Vitreous detachment [Unknown]
  - Vitreous haemorrhage [Unknown]
  - Retinal haemorrhage [Unknown]
  - Infection [Unknown]
  - Oedema peripheral [Unknown]
  - Subcutaneous abscess [Unknown]
  - Gait disturbance [Unknown]
  - Skin erosion [Unknown]
  - Osteoarthritis [Unknown]
  - Thyroid mass [Unknown]
  - Asthma [Unknown]
  - Anxiety [Unknown]
  - Mouth ulceration [Unknown]
  - Physical deconditioning [Unknown]
  - Fall [Unknown]
  - Toe operation [Unknown]

NARRATIVE: CASE EVENT DATE: 20151206
